FAERS Safety Report 13947151 (Version 4)
Quarter: 2018Q3

REPORT INFORMATION
  Report Type: Spontaneous
  Country: US (occurrence: US)
  Receive Date: 20170907
  Receipt Date: 20180808
  Transmission Date: 20181010
  Serious: Yes (Hospitalization)
  Sender: FDA-Public Use
  Company Number: US-DSJP-DSU-2017-135887

PATIENT

DRUGS (1)
  1. BENICAR HCT [Suspect]
     Active Substance: HYDROCHLOROTHIAZIDE\OLMESARTAN MEDOXOMIL
     Indication: PRODUCT USED FOR UNKNOWN INDICATION
     Dosage: 25?12.5, QD
     Dates: start: 20080101, end: 20111231

REACTIONS (6)
  - Gastrooesophageal reflux disease [Recovered/Resolved]
  - Duodenal ulcer [Unknown]
  - Gastritis [Unknown]
  - Cholelithiasis [Unknown]
  - Gastric ulcer [Unknown]
  - Hiatus hernia [Unknown]

NARRATIVE: CASE EVENT DATE: 201001
